FAERS Safety Report 5076254-8 (Version None)
Quarter: 2006Q3

REPORT INFORMATION
  Report Type: 
  Country: None (occurrence: None)
  Receive Date: 20060807
  Receipt Date: 20060725
  Transmission Date: 20061208
  Serious: Yes (Hospitalization)
  Sender: FDA-Public Use
  Company Number: S06-FRA-03093-01

PATIENT
  Age: 87 Year
  Sex: Male

DRUGS (5)
  1. CITALOPRAM HYDROBROMIDE [Suspect]
     Indication: DYSTHYMIC DISORDER
     Dates: start: 20050315, end: 20050630
  2. FOSAMAX [Concomitant]
  3. DEXACIDIN OPHTHALMIC SUSPENSION [Concomitant]
  4. ACETAMINOPHEN [Concomitant]
  5. PERMIXON (SERENOA REPENS) [Concomitant]

REACTIONS (2)
  - FALL [None]
  - HYPONATRAEMIA [None]
